FAERS Safety Report 5220657-5 (Version None)
Quarter: 2007Q1

REPORT INFORMATION
  Report Type: 
  Country: None (occurrence: None)
  Receive Date: 20070126
  Receipt Date: 20070118
  Transmission Date: 20070707
  Serious: Yes (Life-Threatening)
  Sender: FDA-Public Use
  Company Number: 2007AP00289

PATIENT
  Age: 46 Year
  Sex: Male

DRUGS (5)
  1. CRESTOR [Suspect]
     Indication: HYPERCHOLESTEROLAEMIA
     Route: 048
     Dates: start: 20061014, end: 20061212
  2. ALLOPURINOL [Suspect]
     Indication: HYPERURICAEMIA
     Route: 048
     Dates: start: 20061014, end: 20061212
  3. OLMETEC [Suspect]
     Indication: HYPERTENSION
     Route: 048
     Dates: start: 20061014, end: 20061212
  4. RIZE [Concomitant]
  5. UNKNOWN DRUG [Concomitant]
     Indication: DEPRESSION
     Dates: start: 20061007

REACTIONS (1)
  - ACUTE PROMYELOCYTIC LEUKAEMIA [None]
